FAERS Safety Report 5527246-3 (Version None)
Quarter: 2007Q4

REPORT INFORMATION
  Report Type: 
  Country: None (occurrence: None)
  Receive Date: 20071128
  Receipt Date: 20071127
  Transmission Date: 20080405
  Serious: Yes (Other)
  Sender: FDA-Public Use
  Company Number: A0675710A

PATIENT

DRUGS (1)
  1. ALLI [Suspect]
     Indication: DRUG USE FOR UNKNOWN INDICATION

REACTIONS (8)
  - CONSTIPATION [None]
  - FAECAL INCONTINENCE [None]
  - FAECES DISCOLOURED [None]
  - GASTROINTESTINAL DISORDER [None]
  - HEPATIC ENZYME INCREASED [None]
  - NAUSEA [None]
  - STEATORRHOEA [None]
  - VOMITING [None]
